FAERS Safety Report 10643187 (Version 1)
Quarter: 2014Q4

REPORT INFORMATION
  Report Type: Spontaneous
  Country: US (occurrence: None)
  Receive Date: 20141121
  Receipt Date: 20141121
  Transmission Date: 20150529
  Serious: No
  Sender: FDA-Public Use
  Company Number: 163-10004-14071556

PATIENT
  Age: 51 Year
  Sex: Female
  Weight: 68.04 kg

DRUGS (4)
  1. DULOXETINE [Concomitant]
     Active Substance: DULOXETINE
  2. PREVACID [Concomitant]
     Active Substance: LANSOPRAZOLE
  3. PRILOSEC (OMEPRAZOLE) [Concomitant]
     Active Substance: OMEPRAZOLE MAGNESIUM
  4. OTEZLA [Suspect]
     Active Substance: APREMILAST
     Indication: PSORIATIC ARTHROPATHY
     Route: 048
     Dates: start: 20140627

REACTIONS (5)
  - Abdominal pain upper [None]
  - Nausea [None]
  - Diarrhoea [None]
  - Gastroenteritis viral [None]
  - Food poisoning [None]

NARRATIVE: CASE EVENT DATE: 20140711
